FAERS Safety Report 9001932 (Version 1)
Quarter: 2013Q1

REPORT INFORMATION
  Report Type: Spontaneous
  Country: ES (occurrence: ES)
  Receive Date: 20130107
  Receipt Date: 20130107
  Transmission Date: 20140127
  Serious: Yes (Death, Other)
  Sender: FDA-Public Use
  Company Number: ES-ROCHE-1161483

PATIENT
  Age: 3 Year
  Sex: Male
  Weight: 2.23 kg

DRUGS (2)
  1. VALCYTE [Suspect]
     Indication: LIVER TRANSPLANT
     Route: 048
     Dates: start: 20090428, end: 20090909
  2. VALCYTE [Suspect]
     Indication: RENAL TRANSPLANT

REACTIONS (3)
  - Adenovirus infection [Fatal]
  - Neutropenia [Unknown]
  - Leukopenia [Unknown]
